FAERS Safety Report 14083777 (Version 2)
Quarter: 2017Q4

REPORT INFORMATION
  Report Type: Report from Study
  Country: US (occurrence: US)
  Receive Date: 20171013
  Receipt Date: 20171120
  Transmission Date: 20180321
  Serious: Yes (Hospitalization, Other)
  Sender: FDA-Public Use
  Company Number: US-GILEAD-2017-0298962

PATIENT
  Age: 65 Year
  Sex: Female
  Weight: 98.41 kg

DRUGS (8)
  1. FUROSEMIDE. [Concomitant]
     Active Substance: FUROSEMIDE
  2. TADALAFIL [Concomitant]
     Active Substance: TADALAFIL
  3. ALLOPURINOL. [Concomitant]
     Active Substance: ALLOPURINOL
  4. AMBRISENTAN [Suspect]
     Active Substance: AMBRISENTAN
     Indication: PULMONARY ARTERIAL HYPERTENSION
     Dosage: 10 MG, QD
     Route: 048
     Dates: start: 20160609
  5. AMBRISENTAN [Suspect]
     Active Substance: AMBRISENTAN
     Indication: PULMONARY HYPERTENSION
  6. METOPROLOL. [Concomitant]
     Active Substance: METOPROLOL
  7. DIGOXIN. [Concomitant]
     Active Substance: DIGOXIN
  8. COLCHICINE A [Concomitant]

REACTIONS (4)
  - Drug dose omission [Unknown]
  - Haemoptysis [Unknown]
  - Dyspnoea [Not Recovered/Not Resolved]
  - Pneumonia [Recovered/Resolved]

NARRATIVE: CASE EVENT DATE: 20171004
